FAERS Safety Report 21699432 (Version 2)
Quarter: 2022Q4

REPORT INFORMATION
  Report Type: Spontaneous
  Country: BR (occurrence: BR)
  Receive Date: 20221208
  Receipt Date: 20221222
  Transmission Date: 20230112
  Serious: Yes (Other)
  Sender: FDA-Public Use
  Company Number: BR-SA-SAC20221205001273

PATIENT
  Sex: Female
  Weight: 72 kg

DRUGS (14)
  1. THYMOGLOBULIN [Suspect]
     Active Substance: LAPINE T-LYMPHOCYTE IMMUNE GLOBULIN
     Indication: Immunosuppression
     Dosage: 225MG 1X A DAY
     Route: 041
     Dates: start: 20220710, end: 20220712
  2. HYDROCORTISONE [Concomitant]
     Active Substance: HYDROCORTISONE
     Indication: Product used for unknown indication
     Dosage: 1X A DAY,
     Route: 042
     Dates: start: 20220710, end: 20220710
  3. CEFAZOLIN [Concomitant]
     Active Substance: CEFAZOLIN
     Indication: Product used for unknown indication
     Dosage: 8H IN 8H
     Route: 042
     Dates: start: 20220710, end: 20220711
  4. DIPYRONE [Concomitant]
     Active Substance: DIPYRONE
     Indication: Product used for unknown indication
     Dosage: 1X A DAY,
     Route: 042
     Dates: start: 20220710, end: 20220710
  5. TACROLIMUS [Concomitant]
     Active Substance: TACROLIMUS
     Indication: Product used for unknown indication
     Dosage: 12H IN 12H,
     Route: 048
     Dates: start: 20220711
  6. EVEROLIMUS [Concomitant]
     Active Substance: EVEROLIMUS
     Indication: Product used for unknown indication
     Dosage: 12H IN 12H
     Route: 048
     Dates: start: 20220818
  7. MYCOPHENOLATE SODIUM [Concomitant]
     Active Substance: MYCOPHENOLATE SODIUM
     Indication: Product used for unknown indication
     Dosage: 12H IN 12H
     Route: 048
     Dates: start: 20220711, end: 20220818
  8. PREDNISONE [Concomitant]
     Active Substance: PREDNISONE
     Indication: Product used for unknown indication
     Dosage: 1 DF, QD (1X A DAY)
     Route: 048
     Dates: start: 20220711
  9. OMEPRAZOLE [Concomitant]
     Active Substance: OMEPRAZOLE
     Indication: Product used for unknown indication
     Dosage: 12H IN 12H
     Route: 048
     Dates: start: 20220711
  10. BACTRIM [Concomitant]
     Active Substance: SULFAMETHOXAZOLE\TRIMETHOPRIM
     Indication: Product used for unknown indication
     Dosage: 1X A DAY,
     Route: 048
     Dates: start: 20220711
  11. SERTRALINE [Concomitant]
     Active Substance: SERTRALINE HYDROCHLORIDE
     Indication: Product used for unknown indication
     Dosage: 1X A DAY
     Route: 048
     Dates: start: 20220818
  12. ATENOLOL [Concomitant]
     Active Substance: ATENOLOL
     Indication: Product used for unknown indication
     Dosage: 1 DF, QD
     Route: 048
     Dates: start: 20220818
  13. FUROSEMIDE [Concomitant]
     Active Substance: FUROSEMIDE
     Indication: Product used for unknown indication
     Dosage: 1X A DAY
     Route: 048
     Dates: start: 20220818
  14. CITONEURIN [CYANOCOBALAMIN;PYRIDOXINE HYDROCHLORIDE;THIAMINE MONONITRA [Concomitant]
     Indication: Product used for unknown indication
     Dosage: 1X A DAY
     Route: 048
     Dates: start: 20220818

REACTIONS (1)
  - Transplant rejection [Unknown]
